FAERS Safety Report 8168252-2 (Version None)
Quarter: 2012Q1

REPORT INFORMATION
  Report Type: 
  Country: None (occurrence: None)
  Receive Date: 20120227
  Receipt Date: 20120223
  Transmission Date: 20120608
  Serious: Yes (Other)
  Sender: FDA-Public Use
  Company Number: PHFR2011IE007258

PATIENT
  Sex: Male
  Weight: 86.8 kg

DRUGS (6)
  1. CLOZARIL [Suspect]
     Indication: SCHIZOPHRENIA
     Route: 048
     Dates: end: 20100801
  2. CLOZARIL [Suspect]
     Dosage: 400 MG
     Route: 048
     Dates: start: 20111109
  3. ARIPIPRAZOLE [Concomitant]
     Indication: SCHIZOPHRENIA
     Dosage: 15 MG, UNK
     Route: 048
     Dates: start: 20100101
  4. CLONAZEPAM [Concomitant]
     Indication: AGITATION
  5. CLOZARIL [Suspect]
     Route: 048
     Dates: start: 20111102
  6. CLONAZEPAM [Concomitant]
     Indication: SCHIZOPHRENIA
     Dosage: 0.5 MG, UNK
     Route: 048
     Dates: start: 20110920

REACTIONS (5)
  - GENERAL PHYSICAL HEALTH DETERIORATION [None]
  - HYPOTENSION [None]
  - HEART RATE INCREASED [None]
  - VENTRICULAR EXTRASYSTOLES [None]
  - TACHYCARDIA [None]
